FAERS Safety Report 17377821 (Version 1)
Quarter: 2020Q1

REPORT INFORMATION
  Report Type: Spontaneous
  Country: IT (occurrence: IT)
  Receive Date: 20200206
  Receipt Date: 20200206
  Transmission Date: 20200409
  Serious: Yes (Other)
  Sender: FDA-Public Use
  Company Number: IT-MYLANLABS-2020M1013199

PATIENT
  Age: 27 Year
  Sex: Female
  Weight: 99 kg

DRUGS (3)
  1. CARBOLITHIUM [Suspect]
     Active Substance: LITHIUM CARBONATE
     Indication: SCHIZOAFFECTIVE DISORDER
     Dosage: 1200 MILLIGRAM, QD
     Route: 048
     Dates: start: 20191125, end: 20191127
  2. FLURAZEPAM [Suspect]
     Active Substance: FLURAZEPAM HYDROCHLORIDE
     Indication: INSOMNIA
     Dosage: 30 MILLIGRAM, QD
     Route: 048
     Dates: start: 20191115, end: 20191128
  3. ARIPIPRAZOLE. [Concomitant]
     Active Substance: ARIPIPRAZOLE
     Indication: SCHIZOAFFECTIVE DISORDER
     Dosage: 20 MILLIGRAM, QD
     Route: 048
     Dates: start: 20190115, end: 20191128

REACTIONS (3)
  - Blood lactate dehydrogenase increased [Recovering/Resolving]
  - Blood creatine phosphokinase increased [Recovering/Resolving]
  - Hypertransaminasaemia [Recovering/Resolving]

NARRATIVE: CASE EVENT DATE: 20191127
